FAERS Safety Report 10547636 (Version 1)
Quarter: 2014Q4

REPORT INFORMATION
  Report Type: Spontaneous
  Country: US (occurrence: None)
  Receive Date: 20141010
  Receipt Date: 20141010
  Transmission Date: 20150529
  Serious: Yes (Hospitalization)
  Sender: FDA-Public Use
  Company Number: 163-POMAL-14061515

PATIENT
  Age: 75 Year
  Sex: Female

DRUGS (1)
  1. POMALYST [Suspect]
     Active Substance: POMALIDOMIDE
     Indication: PLASMA CELL MYELOMA
     Dosage: 28 IN 28 D
     Route: 048
     Dates: start: 20140508, end: 201406

REACTIONS (2)
  - Dyspnoea [None]
  - Pneumonia [None]

NARRATIVE: CASE EVENT DATE: 2014
